FAERS Safety Report 12482887 (Version 2)
Quarter: 2016Q3

REPORT INFORMATION
  Report Type: Spontaneous
  Country: JP (occurrence: JP)
  Receive Date: 20160620
  Receipt Date: 20160728
  Transmission Date: 20161109
  Serious: Yes (Other)
  Sender: FDA-Public Use
  Company Number: JP-GILEAD-2016-0218329

PATIENT
  Age: 71 Year
  Sex: Male
  Weight: 44.5 kg

DRUGS (1)
  1. HARVONI [Suspect]
     Active Substance: LEDIPASVIR\SOFOSBUVIR
     Indication: CHRONIC HEPATITIS C
     Dosage: 1 DF, QD
     Route: 048

REACTIONS (3)
  - Cyanosis [Recovering/Resolving]
  - Epilepsy [Recovering/Resolving]
  - Respiratory failure [Recovering/Resolving]
